FAERS Safety Report 16255963 (Version 1)
Quarter: 2019Q2

REPORT INFORMATION
  Report Type: Spontaneous
  Country: US (occurrence: US)
  Receive Date: 20190429
  Receipt Date: 20190429
  Transmission Date: 20190711
  Serious: Yes (Hospitalization)
  Sender: FDA-Public Use
  Company Number: None

PATIENT
  Sex: Female

DRUGS (8)
  1. CALCITROL / EPOGEN [Concomitant]
  2. FERROUS SULF / FLOVENT [Concomitant]
  3. RENVELA / SIMVASTATIN [Concomitant]
  4. AMLODIPINE / AURYXIA [Concomitant]
  5. GENTAMICIN / LISINOPRIL [Concomitant]
  6. VENTOLIN [Concomitant]
     Active Substance: ALBUTEROL SULFATE
  7. METOPROLOL / MINOXIDIL [Concomitant]
  8. SENSIPAR [Suspect]
     Active Substance: CINACALCET HYDROCHLORIDE
     Indication: ANAEMIA
     Route: 048
     Dates: start: 20151002

REACTIONS (2)
  - Dialysis [None]
  - Speech disorder [None]
